FAERS Safety Report 6789006-5 (Version None)
Quarter: 2010Q2

REPORT INFORMATION
  Report Type: 
  Country: None (occurrence: None)
  Receive Date: 20100623
  Receipt Date: 20080619
  Transmission Date: 20101027
  Serious: Yes (Hospitalization)
  Sender: FDA-Public Use
  Company Number: US-PFIZER INC-2008051670

PATIENT
  Age: 16 Year
  Sex: Male

DRUGS (3)
  1. GEODON [Suspect]
     Dosage: AT BEDTIME
  2. TRILEPTAL [Concomitant]
  3. ZOMIG [Concomitant]

REACTIONS (2)
  - CHEST PAIN [None]
  - TACHYCARDIA [None]
